FAERS Safety Report 8074719-8 (Version None)
Quarter: 2012Q1

REPORT INFORMATION
  Report Type: 
  Country: None (occurrence: None)
  Receive Date: 20120126
  Receipt Date: 20120113
  Transmission Date: 20120608
  Serious: Yes (Hospitalization)
  Sender: FDA-Public Use
  Company Number: US-ROCHE-1031010

PATIENT
  Sex: Female
  Weight: 69.12 kg

DRUGS (10)
  1. XELODA [Suspect]
     Indication: BREAST CANCER
     Dosage: TWICE DAILY DAY1 TO DAY 14 OF A 21 DAY CYCLE
     Route: 048
     Dates: start: 20110606, end: 20111228
  2. METFORMIN HCL [Concomitant]
     Dates: end: 20111231
  3. MULTI-VITAMIN [Concomitant]
  4. OXYCONTIN [Concomitant]
     Dates: start: 20110101
  5. OXYCODONE HCL [Concomitant]
     Dates: start: 20110101
  6. CYMBALTA [Concomitant]
  7. RAMUCIRUMAB [Suspect]
     Indication: BREAST CANCER
     Route: 042
     Dates: start: 20110606, end: 20111228
  8. GABAPENTIN [Concomitant]
     Dates: start: 20110101, end: 20111231
  9. LISINOPRIL [Concomitant]
  10. CETIRIZINE HCL [Concomitant]
     Dates: start: 20110101

REACTIONS (2)
  - DEHYDRATION [None]
  - FAILURE TO THRIVE [None]
